FAERS Safety Report 24376055 (Version 1)
Quarter: 2024Q3

REPORT INFORMATION
  Report Type: Spontaneous
  Country: US (occurrence: None)
  Receive Date: 20240925
  Receipt Date: 20240925
  Transmission Date: 20241016
  Serious: No
  Sender: Public
  Company Number: None

PATIENT
  Age: 59 Year
  Sex: Male
  Weight: 85 kg

DRUGS (1)
  1. TOFACITINIB [Suspect]
     Active Substance: TOFACITINIB
     Dates: start: 20230215, end: 20230222

REACTIONS (2)
  - Liver function test increased [None]
  - Therapy cessation [None]

NARRATIVE: CASE EVENT DATE: 20230221
